FAERS Safety Report 8303755-9 (Version None)
Quarter: 2012Q2

REPORT INFORMATION
  Report Type: 
  Country: None (occurrence: None)
  Receive Date: 20120423
  Receipt Date: 20120417
  Transmission Date: 20120825
  Serious: Yes (Other)
  Sender: FDA-Public Use
  Company Number: US-BAYER-2012-038139

PATIENT
  Age: 39 Year
  Sex: Female

DRUGS (3)
  1. YAZ [Suspect]
     Dosage: UNK
     Dates: start: 20090601, end: 20090908
  2. DROSPIRENONE AND ETHINYL ESTRADIOL [Suspect]
     Dosage: UNK
     Dates: start: 20090601, end: 20090908
  3. YASMIN [Suspect]
     Dosage: UNK
     Dates: start: 20090601, end: 20090908

REACTIONS (8)
  - PAIN [None]
  - EMOTIONAL DISTRESS [None]
  - NERVOUSNESS [None]
  - FEAR OF DEATH [None]
  - DEEP VEIN THROMBOSIS [None]
  - PULMONARY EMBOLISM [None]
  - DEPRESSION [None]
  - INJURY [None]
